FAERS Safety Report 13135941 (Version 2)
Quarter: 2017Q1

REPORT INFORMATION
  Report Type: Spontaneous
  Country: KR (occurrence: KR)
  Receive Date: 20170120
  Receipt Date: 20170316
  Transmission Date: 20170428
  Serious: Yes (Hospitalization, Other)
  Sender: FDA-Public Use
  Company Number: KR-009507513-1701KOR008103

PATIENT
  Age: 42 Year
  Sex: Male
  Weight: 67 kg

DRUGS (19)
  1. ALOXI [Concomitant]
     Active Substance: PALONOSETRON HYDROCHLORIDE
     Indication: NAUSEA
     Dosage: 0.25 MG, ONCE
     Route: 042
     Dates: start: 20160627, end: 20160627
  2. VIREAD [Concomitant]
     Active Substance: TENOFOVIR DISOPROXIL FUMARATE
     Indication: HEPATITIS B
     Dosage: 300 MG, QD
     Route: 048
     Dates: start: 20160614
  3. NEXIUM I.V. [Concomitant]
     Active Substance: ESOMEPRAZOLE SODIUM
     Indication: PROPHYLAXIS
     Dosage: 40 MG, ONCE
     Route: 042
     Dates: start: 20160701, end: 20160701
  4. ORNITHINE ASPARTATE [Concomitant]
     Active Substance: ORNITHINE ASPARTATE
     Indication: HEPATITIS B
     Dosage: 10 G, ONCE
     Route: 042
     Dates: start: 20160701, end: 20160701
  5. LEVOMELS [Concomitant]
     Indication: HEPATITIS B
     Dosage: STRENGHT: 500MG/5ML, 10 MG, QD
     Route: 042
     Dates: start: 20160701, end: 20160701
  6. EMEND (FOSAPREPITANT DIMEGLUMINE) [Suspect]
     Active Substance: FOSAPREPITANT DIMEGLUMINE
     Dosage: 150 MG, ONCE
     Route: 042
     Dates: start: 20160725, end: 20160725
  7. DEXAMETHASONE SODIUM PHOSPHATE. [Concomitant]
     Active Substance: DEXAMETHASONE SODIUM PHOSPHATE
     Indication: PROPHYLAXIS OF NAUSEA AND VOMITING
     Dosage: 10 MG, ONCE
     Route: 042
     Dates: start: 20160627, end: 20160627
  8. LASIX [Concomitant]
     Active Substance: FUROSEMIDE
     Dosage: 20 MG, ONCE. STRENGTH: 20MG/2ML
     Route: 042
     Dates: start: 20160627, end: 20160627
  9. URSA TABLETS [Concomitant]
     Indication: HEPATITIS B
     Dosage: 100 MG, TID
     Route: 048
     Dates: start: 20160620, end: 20160630
  10. TROLAC [Concomitant]
     Indication: CHOLANGIOCARCINOMA
     Dosage: 30 MG, ONCE. STRENGTH: 30MG/ML
     Route: 042
     Dates: start: 20160701, end: 20160701
  11. CEFTRIAXONE. [Concomitant]
     Active Substance: CEFTRIAXONE
     Indication: INFECTION PROPHYLAXIS
     Dosage: 2 G, QD
     Route: 042
     Dates: start: 20160616, end: 20160620
  12. METRONIDAZOLE. [Concomitant]
     Active Substance: METRONIDAZOLE
     Indication: INFECTION PROPHYLAXIS
     Dosage: 100 ML, TID. STRENGTH: 100ML (BTL) PP
     Route: 042
     Dates: start: 20160616, end: 20160620
  13. EMEND (FOSAPREPITANT DIMEGLUMINE) [Suspect]
     Active Substance: FOSAPREPITANT DIMEGLUMINE
     Indication: PROPHYLAXIS OF NAUSEA AND VOMITING
     Dosage: 150 MG, ONCE.
     Route: 042
     Dates: start: 20160627, end: 20160627
  14. LASIX [Concomitant]
     Active Substance: FUROSEMIDE
     Indication: PROPHYLAXIS
     Dosage: 20 MG, ONCE. STRENGTH: 20MG/2ML
     Route: 042
     Dates: start: 20160627, end: 20160627
  15. GODEX CAP [Concomitant]
     Indication: HEPATITIS B
     Dosage: 1 CAPSULE, BID
     Route: 048
     Dates: start: 20160620, end: 20160628
  16. PANTOLINE INJECTION [Concomitant]
     Indication: PROPHYLAXIS
     Dosage: 40 MG, QD
     Route: 042
     Dates: start: 20160616, end: 20160707
  17. FLUOROURACIL. [Concomitant]
     Active Substance: FLUOROURACIL
     Indication: CHOLANGIOCARCINOMA
     Dosage: 1790 MG, DAILY. STRENGTH: 1000MG/20ML. CYCLE 1
     Route: 042
     Dates: start: 20160627, end: 20160630
  18. DEXAMETHASONE. [Concomitant]
     Active Substance: DEXAMETHASONE
     Indication: PROPHYLAXIS OF NAUSEA AND VOMITING
     Dosage: 3.75 MG, BID
     Route: 048
     Dates: start: 20160628, end: 20160630
  19. CISPLATIN. [Concomitant]
     Active Substance: CISPLATIN
     Indication: CHOLANGIOCARCINOMA
     Dosage: 134.5 MG, ONCE. STRENGHT: 50MG/100ML. CYCLE 1
     Route: 042
     Dates: start: 20160627, end: 20160627

REACTIONS (4)
  - Abdominal pain [Recovered/Resolved]
  - Jaundice [Recovered/Resolved]
  - Pyrexia [Recovered/Resolved]
  - Malignant neoplasm progression [Unknown]

NARRATIVE: CASE EVENT DATE: 2016
